FAERS Safety Report 9693263 (Version 1)
Quarter: 2013Q4

REPORT INFORMATION
  Report Type: Spontaneous
  Country: US (occurrence: None)
  Receive Date: 20131114
  Receipt Date: 20131114
  Transmission Date: 20140711
  Serious: Yes (Hospitalization, Other)
  Sender: FDA-Public Use
  Company Number: US-ZYDUS-002398

PATIENT
  Age: 49 Year
  Sex: Male

DRUGS (2)
  1. RIBAVIRIN [Suspect]
     Indication: HEPATITIS C
     Route: 048
  2. PEGINTERFERON ALFA-2A (PEGINTERFERON ALFA-2A) [Suspect]
     Indication: HEPATITIS C
     Route: 058

REACTIONS (10)
  - Anaemia [None]
  - Irritability [None]
  - Fatigue [None]
  - Nausea [None]
  - Weight decreased [None]
  - Myalgia [None]
  - Disturbance in attention [None]
  - Arteriovenous fistula site infection [None]
  - Renal failure acute [None]
  - Toxicity to various agents [None]
